FAERS Safety Report 7765009-9 (Version None)
Quarter: 2011Q3

REPORT INFORMATION
  Report Type: 
  Country: None (occurrence: None)
  Receive Date: 20110921
  Receipt Date: 20110912
  Transmission Date: 20111222
  Serious: Yes (Hospitalization)
  Sender: FDA-Public Use
  Company Number: US-ROCHE-800359

PATIENT
  Sex: Female

DRUGS (7)
  1. BEVACIZUMAB [Suspect]
     Indication: BREAST CANCER
     Dosage: LAST DOSE PRIOR TO AE ONSET: 06 JUNE 2009
     Route: 065
     Dates: start: 20090425
  2. TRASTUZUMAB [Suspect]
     Indication: BREAST CANCER
     Route: 065
  3. TRASTUZUMAB [Suspect]
     Route: 065
  4. EPIRUBICIN [Suspect]
     Indication: BREAST CANCER
     Route: 042
  5. DOCETAXEL [Suspect]
     Indication: BREAST CANCER
     Dosage: CYCLE 5
     Route: 065
  6. CYCLOPHOSPHAMIDE [Suspect]
     Indication: BREAST CANCER
     Route: 042
  7. DOCETAXEL [Suspect]
     Dosage: DOSE LOWERED FOR CYCLE 6
     Route: 065

REACTIONS (1)
  - RHABDOMYOLYSIS [None]
